FAERS Safety Report 7206224-2 (Version None)
Quarter: 2010Q4

REPORT INFORMATION
  Report Type: 
  Country: None (occurrence: None)
  Receive Date: 20101221
  Receipt Date: 20101208
  Transmission Date: 20110411
  Serious: Yes (Other)
  Sender: FDA-Public Use
  Company Number: 012221

PATIENT
  Age: 24 Year
  Sex: Male

DRUGS (5)
  1. BUSULFEX [Suspect]
     Indication: STEM CELL TRANSPLANT
     Dosage: 16 MG/KG;
  2. ETOPOSIDE [Concomitant]
  3. CYCLOPHOSPHAMIDE [Concomitant]
  4. STG (ANTILYMPHOCYTE IMMUNOGLOBULIN (HORSE)) [Concomitant]
  5. CYCLOSPORINE [Concomitant]

REACTIONS (6)
  - COLITIS [None]
  - DIARRHOEA [None]
  - HUMAN HERPESVIRUS 6 INFECTION [None]
  - PYREXIA [None]
  - RASH MACULO-PAPULAR [None]
  - WHITE BLOOD CELL COUNT DECREASED [None]
